FAERS Safety Report 7357026-8 (Version None)
Quarter: 2011Q1

REPORT INFORMATION
  Report Type: 
  Country: None (occurrence: None)
  Receive Date: 20110307
  Receipt Date: 20100420
  Transmission Date: 20110831
  Serious: No
  Sender: FDA-Public Use
  Company Number: AEUSA201000127

PATIENT
  Age: 48 Year
  Sex: Male

DRUGS (2)
  1. PROLASTIN-C [Suspect]
     Indication: ALPHA-1 ANTI-TRYPSIN DEFICIENCY
     Dosage: 60 MG/KG, QW, IV
     Route: 042
     Dates: start: 20100405
  2. PROLASTIN [Suspect]
     Indication: ALPHA-1 ANTI-TRYPSIN DEFICIENCY
     Dosage: 60 MG.KG, QW, IV
     Route: 042
     Dates: start: 20050101, end: 20100101

REACTIONS (3)
  - HYPOAESTHESIA [None]
  - HYPOAESTHESIA ORAL [None]
  - INFUSION RELATED REACTION [None]
